FAERS Safety Report 10715088 (Version 1)
Quarter: 2015Q1

REPORT INFORMATION
  Report Type: Spontaneous
  Country: US (occurrence: US)
  Receive Date: 20150115
  Receipt Date: 20150115
  Transmission Date: 20150721
  Serious: Yes (Death, Other)
  Sender: FDA-Public Use
  Company Number: US-GLAXOSMITHKLINE-US2015GSK003306

PATIENT
  Age: 30 Year
  Sex: Male

DRUGS (6)
  1. NICOTINE. [Suspect]
     Active Substance: NICOTINE
  2. DIPHENHYDRAMINE [Suspect]
     Active Substance: DIPHENHYDRAMINE
     Route: 065
  3. ETHANOL [Suspect]
     Active Substance: ALCOHOL
     Route: 065
  4. HYDROCODONE [Suspect]
     Active Substance: HYDROCODONE
     Route: 065
  5. HEROIN [Suspect]
     Active Substance: DIACETYLMORPHINE
     Route: 065
  6. CAFFEINE. [Suspect]
     Active Substance: CAFFEINE
     Route: 065

REACTIONS (3)
  - Cardio-respiratory arrest [Unknown]
  - Death [Fatal]
  - Drug abuse [Fatal]
